FAERS Safety Report 6024506-7 (Version None)
Quarter: 2008Q4

REPORT INFORMATION
  Report Type: 
  Country: None (occurrence: None)
  Receive Date: 20081231
  Receipt Date: 20080923
  Transmission Date: 20090506
  Serious: No
  Sender: FDA-Public Use
  Company Number: US-BRISTOL-MYERS SQUIBB COMPANY-14344592

PATIENT
  Age: 56 Year
  Sex: Female

DRUGS (5)
  1. ORENCIA [Suspect]
  2. METHOTREXATE [Concomitant]
  3. LYRICA [Concomitant]
  4. ESTRADIOL [Concomitant]
  5. MULTI-VITAMINS [Concomitant]

REACTIONS (2)
  - PYREXIA [None]
  - STOMATITIS [None]
